FAERS Safety Report 8904358 (Version 1)
Quarter: 2012Q4

REPORT INFORMATION
  Report Type: 
  Country: US (occurrence: US)
  Receive Date: 20121112
  Receipt Date: 20121112
  Transmission Date: 20130627
  Serious: No
  Sender: FDA-Public Use
  Company Number: US-009507513-1211USA004013

PATIENT
  Sex: Female

DRUGS (1)
  1. JANUVIA [Suspect]
     Dosage: 100 mg, qd
     Route: 048
     Dates: start: 201202, end: 2012

REACTIONS (3)
  - Tremor [Unknown]
  - Balance disorder [Unknown]
  - Product quality issue [Unknown]
